FAERS Safety Report 4841275-4 (Version None)
Quarter: 2005Q4

REPORT INFORMATION
  Report Type: 
  Country: None (occurrence: None)
  Receive Date: 20051130
  Receipt Date: 20051118
  Transmission Date: 20060501
  Serious: Yes (Hospitalization, Other)
  Sender: FDA-Public Use
  Company Number: PHBS2005BR17145

PATIENT
  Age: 79 Year
  Sex: Male
  Weight: 60 kg

DRUGS (4)
  1. EXELON [Suspect]
     Indication: DEMENTIA ALZHEIMER'S TYPE
     Dosage: 1.5 MG, BID
     Route: 048
     Dates: end: 20051101
  2. ATENOLOL [Concomitant]
     Dosage: 25 MG, QD
     Route: 048
  3. PAROXETINE HCL [Concomitant]
     Dosage: 20 MG, QD
     Route: 048
  4. OLCADIL [Concomitant]
     Dosage: 1 MG, QD
     Route: 048

REACTIONS (4)
  - ABDOMINAL PAIN UPPER [None]
  - AGITATION [None]
  - PNEUMONIA ASPIRATION [None]
  - VOMITING [None]
